FAERS Safety Report 9039508 (Version 2)
Quarter: 2013Q2

REPORT INFORMATION
  Report Type: Spontaneous
  Country: US (occurrence: US)
  Receive Date: 20130129
  Receipt Date: 20130501
  Transmission Date: 20140414
  Serious: Yes (Other)
  Sender: FDA-Public Use
  Company Number: US-B.I. PHARMACEUTICALS,INC./RIDGEFIELD-2013-BI-01869BP

PATIENT
  Age: 77 Year
  Sex: Male
  Weight: 78.02 kg

DRUGS (6)
  1. SPIRIVA [Suspect]
     Indication: CHRONIC OBSTRUCTIVE PULMONARY DISEASE
     Dosage: 18 MCG
     Route: 055
     Dates: start: 2008
  2. SYMBICORT [Concomitant]
     Indication: ASTHMA
     Route: 055
  3. ASACOL [Concomitant]
     Indication: COLITIS ULCERATIVE
     Dosage: 2400 MG
     Route: 048
     Dates: start: 1999
  4. PRAVASTATIN [Concomitant]
     Indication: BLOOD CHOLESTEROL INCREASED
     Dosage: 20 MG
     Route: 048
     Dates: start: 1999
  5. PRAVASTATIN [Concomitant]
     Indication: HYPERLIPIDAEMIA
  6. LISINOPRIL [Concomitant]
     Indication: HYPERTENSION
     Dosage: 10 MG
     Route: 048
     Dates: start: 1999

REACTIONS (12)
  - Bile duct cancer [Not Recovered/Not Resolved]
  - Metastases to bone [Not Recovered/Not Resolved]
  - Hepatic neoplasm [Not Recovered/Not Resolved]
  - Visual impairment [Not Recovered/Not Resolved]
  - Cognitive disorder [Unknown]
  - Confusional state [Not Recovered/Not Resolved]
  - Abdominal discomfort [Recovered/Resolved]
  - Hepatic function abnormal [Not Recovered/Not Resolved]
  - Pyrexia [Not Recovered/Not Resolved]
  - Temperature intolerance [Not Recovered/Not Resolved]
  - Rash [Not Recovered/Not Resolved]
  - Nausea [Not Recovered/Not Resolved]
